FAERS Safety Report 24122693 (Version 1)
Quarter: 2024Q3

REPORT INFORMATION
  Report Type: Report from Study
  Country: US (occurrence: None)
  Receive Date: 20240723
  Receipt Date: 20240723
  Transmission Date: 20241017
  Serious: Yes (Hospitalization)
  Sender: ASTRAZENECA
  Company Number: 2021A174369

PATIENT
  Sex: Male

DRUGS (7)
  1. TAGRISSO [Suspect]
     Active Substance: OSIMERTINIB
     Indication: Product used for unknown indication
     Route: 048
     Dates: start: 20210118
  2. ZINC [Concomitant]
     Active Substance: ZINC
  3. VITAMIN A [Concomitant]
     Active Substance: VITAMIN A
  4. VITAMIN C [Concomitant]
     Active Substance: ASCORBIC ACID
  5. VITAMIN K [Concomitant]
     Active Substance: PHYTONADIONE
  6. VITAMIN D [Concomitant]
     Active Substance: VITAMIN D NOS
  7. DECADRON [Concomitant]
     Active Substance: DEXAMETHASONE

REACTIONS (3)
  - Thrombosis [Unknown]
  - Peripheral swelling [Unknown]
  - Sepsis [Unknown]
